FAERS Safety Report 19503617 (Version 1)
Quarter: 2021Q3

REPORT INFORMATION
  Report Type: Spontaneous
  Country: US (occurrence: US)
  Receive Date: 20210707
  Receipt Date: 20210707
  Transmission Date: 20211014
  Serious: Yes (Hospitalization)
  Sender: FDA-Public Use
  Company Number: US-MYLANLABS-2021M1039339

PATIENT
  Age: 56 Year
  Sex: Male

DRUGS (7)
  1. HALOPERIDOL. [Suspect]
     Active Substance: HALOPERIDOL
     Indication: DELIRIUM
     Dosage: 5 MILLIGRAM GIVEN ON DAY 28
  2. OLANZAPINE. [Suspect]
     Active Substance: OLANZAPINE
     Dosage: 10 MILLIGRAM, QD STARTED ON HOSPITAL DAY 34
     Route: 060
  3. DEXMEDETOMIDINE. [Concomitant]
     Active Substance: DEXMEDETOMIDINE
     Indication: INSOMNIA
     Dosage: 2 MICROG/KG/H INFUSION WAS ADMINISTERED NIGHTLY FROM 8PM TO 5AM FROM HOSPITAL DAY 34?41
  4. OLANZAPINE. [Suspect]
     Active Substance: OLANZAPINE
     Dosage: 15 MILLIGRAM, QD STARTED ON HOSPITAL DAY 45
     Route: 060
  5. PROPOFOL. [Concomitant]
     Active Substance: PROPOFOL
     Indication: INSOMNIA
     Dosage: ADMINISTERED AT NIGHT
     Route: 065
  6. DIPHENHYDRAMINE. [Suspect]
     Active Substance: DIPHENHYDRAMINE
     Indication: INSOMNIA
     Dosage: 50 MILLIGRAM ON HOSPITAL DAY 43
     Route: 042
  7. OLANZAPINE. [Suspect]
     Active Substance: OLANZAPINE
     Indication: INSOMNIA
     Dosage: 5 MILLIGRAM, QD AT BEDTIME; STARTED ON HOSPITAL DAY 28
     Route: 060

REACTIONS (3)
  - Akathisia [Recovered/Resolved]
  - Drug ineffective for unapproved indication [Unknown]
  - Off label use [Recovered/Resolved]
